FAERS Safety Report 8477859-4 (Version None)
Quarter: 2012Q2

REPORT INFORMATION
  Report Type: 
  Country: None (occurrence: None)
  Receive Date: 20120629
  Receipt Date: 20120622
  Transmission Date: 20120825
  Serious: Yes (Hospitalization)
  Sender: FDA-Public Use
  Company Number: FR-PFIZER INC-2012150315

PATIENT
  Age: 64 Year
  Sex: Female

DRUGS (9)
  1. CACIT D3 [Concomitant]
     Dosage: 1 DF, 1X/DAY
     Route: 048
  2. BISOPROLOL FUMARATE [Concomitant]
     Dosage: 2.5 MG/DAILY
     Route: 048
  3. VALACYCLOVIR HYDROCHLORIDE [Concomitant]
     Indication: ANTIVIRAL PROPHYLAXIS
     Dosage: 500 MG, 2X/DAY
     Route: 048
  4. NEORAL [Suspect]
     Dosage: 75 MG/DAILY
     Dates: start: 20110321, end: 20110323
  5. LEVOTHYROXINE SODIUM [Concomitant]
     Dosage: 50 UG/DAILY
     Route: 048
  6. VFEND [Suspect]
     Dosage: 200 MG, 2X/DAY
     Route: 048
     Dates: end: 20110530
  7. AMOXICILLIN TRIHYDRATE [Concomitant]
     Indication: ANTIBIOTIC PROPHYLAXIS
     Dosage: 1 G, 2X/DAY
     Route: 048
  8. NEORAL [Suspect]
     Dosage: 50 MG/DAILY
     Dates: start: 20110324, end: 20110420
  9. NEORAL [Suspect]
     Dosage: 100 MG/DAILY
     Route: 048
     Dates: end: 20110320

REACTIONS (3)
  - KERATOACANTHOMA [None]
  - RASH PRURITIC [None]
  - RASH MACULAR [None]
